FAERS Safety Report 24984200 (Version 2)
Quarter: 2025Q2

REPORT INFORMATION
  Report Type: Other
  Country: AU (occurrence: AU)
  Receive Date: 20250219
  Receipt Date: 20250614
  Transmission Date: 20250717
  Serious: Yes (Other)
  Sender: ANI
  Company Number: AU-ANIPHARMA-015605

PATIENT
  Sex: Female

DRUGS (2)
  1. OXYCODONE [Suspect]
     Active Substance: OXYCODONE
     Indication: Cancer pain
  2. MORPHINE [Suspect]
     Active Substance: MORPHINE
     Indication: Cancer pain

REACTIONS (1)
  - Neurotoxicity [Recovered/Resolved]
